FAERS Safety Report 5518287-0 (Version None)
Quarter: 2007Q4

REPORT INFORMATION
  Report Type: 
  Country: None (occurrence: None)
  Receive Date: 20071115
  Receipt Date: 20071105
  Transmission Date: 20080405
  Serious: Yes (Hospitalization)
  Sender: FDA-Public Use
  Company Number: US-ELI_LILLY_AND_COMPANY-US200601001086

PATIENT
  Sex: Female
  Weight: 113.83 kg

DRUGS (25)
  1. ZYPREXA [Suspect]
     Indication: DEPRESSION
     Dosage: 7.5 MG, EACH EVENING
     Dates: start: 20010101, end: 20051018
  2. LEVOTHYROXINE SODIUM [Concomitant]
     Dosage: 0.15 MG, UNK
     Dates: start: 20030411
  3. DARVOCET [Concomitant]
     Dosage: UNK, AS NEEDED
     Dates: start: 20040907
  4. FOLIC ACID [Concomitant]
     Dosage: 1 MG, DAILY (1/D)
     Dates: start: 20050118
  5. METHOTREXATE [Concomitant]
     Dosage: 2.5 MG, 4/W
     Dates: start: 20050419
  6. METHOTREXATE [Concomitant]
     Dosage: 2.5 MG, 5/W
     Dates: start: 20060424
  7. LISINOPRIL [Concomitant]
     Dosage: 10 MG, DAILY (1/D)
     Dates: start: 20040223
  8. LISINOPRIL [Concomitant]
     Dosage: 10 MG, 3/D
     Dates: start: 20040415
  9. LISINOPRIL [Concomitant]
     Dosage: 40 MG, DAILY (1/D)
     Dates: start: 20050419
  10. LOVASTATIN [Concomitant]
     Dosage: 40 MG, AS NEEDED
     Dates: start: 20050824
  11. ZOCOR [Concomitant]
     Dosage: 40 MG, AS NEEDED
     Dates: start: 20030812, end: 20051018
  12. LORATADINE [Concomitant]
     Dosage: 10 MG, UNK
  13. PAXIL [Concomitant]
     Dosage: 20 MG, DAILY (1/D)
  14. REMERON [Concomitant]
     Dosage: 15 MG, EACH EVENING
  15. TYLENOL                                 /USA/ [Concomitant]
     Dosage: 1000 MG, AS NEEDED
  16. CLONIDINE [Concomitant]
     Dosage: 0.1 MG, 3/D
     Dates: start: 20040223
  17. CLONIDINE [Concomitant]
     Dosage: 0.2 MG, UNK
     Dates: end: 20040301
  18. RANITIDINE [Concomitant]
     Dosage: 300 MG, AS NEEDED
  19. ATENOLOL [Concomitant]
     Dosage: 25 MG, DAILY (1/D)
  20. ATENOLOL [Concomitant]
     Dosage: 50 MG, DAILY (1/D)
     Dates: start: 20060424
  21. CELEBREX [Concomitant]
  22. VIOXX [Concomitant]
     Indication: ARTHRITIS
     Dosage: 50 MG, DAILY (1/D)
  23. NAPROSYN [Concomitant]
     Dosage: 1000 MG, AS NEEDED
  24. SKELAXIN [Concomitant]
     Dosage: 1 D/F, EACH EVENING
     Dates: start: 20060124
  25. HYDROCHLOROTHIAZIDE [Concomitant]
     Dosage: 25 MG, DAILY (1/D)
     Dates: end: 20040201

REACTIONS (5)
  - ASPARTATE AMINOTRANSFERASE INCREASED [None]
  - CELLULITIS [None]
  - HAEMATURIA [None]
  - HAIR DISORDER [None]
  - WEIGHT INCREASED [None]
